FAERS Safety Report 10472744 (Version 5)
Quarter: 2015Q1

REPORT INFORMATION
  Report Type: Report from Study
  Country: TR (occurrence: TR)
  Receive Date: 20140924
  Receipt Date: 20150106
  Transmission Date: 20150720
  Serious: Yes (Hospitalization)
  Sender: FDA-Public Use
  Company Number: PHHY2013TR049009

PATIENT
  Age: 22 Year
  Sex: Female
  Weight: 50 kg

DRUGS (5)
  1. EXJADE [Suspect]
     Active Substance: DEFERASIROX
     Indication: THALASSAEMIA BETA
     Dosage: 1000 MG, QD
     Route: 048
     Dates: start: 2009
  2. INSULIN ASPART [Concomitant]
     Active Substance: INSULIN ASPART
     Indication: PRODUCT USED FOR UNKNOWN INDICATION
     Dosage: 12 U, TID
     Route: 058
  3. INSULIN GLARGINE [Concomitant]
     Active Substance: INSULIN GLARGINE
     Indication: PRODUCT USED FOR UNKNOWN INDICATION
     Dosage: 10 U, QD
     Route: 058
  4. EXJADE [Suspect]
     Active Substance: DEFERASIROX
     Dosage: 1000 MG, QD
     Route: 048
  5. EXJADE [Suspect]
     Active Substance: DEFERASIROX
     Route: 048
     Dates: start: 20141216

REACTIONS (6)
  - Haemoglobin decreased [Not Recovered/Not Resolved]
  - Abdominal pain lower [Not Recovered/Not Resolved]
  - Blood glucose increased [Recovering/Resolving]
  - Blood urea increased [Not Recovered/Not Resolved]
  - Condition aggravated [Not Recovered/Not Resolved]
  - Osteoarthritis [Not Recovered/Not Resolved]

NARRATIVE: CASE EVENT DATE: 20130512
